FAERS Safety Report 13579589 (Version 1)
Quarter: 2017Q2

REPORT INFORMATION
  Report Type: Report from Study
  Country: CN (occurrence: CN)
  Receive Date: 20170525
  Receipt Date: 20170525
  Transmission Date: 20170830
  Serious: Yes (Other)
  Sender: FDA-Public Use
  Company Number: CN-ROCHE-1937498

PATIENT

DRUGS (2)
  1. RHSA/IFN ALPHA 2A [Suspect]
     Active Substance: INTERFERON ALFA-2A
     Indication: HEPATITIS B
     Route: 065
  2. PEG-INTERFERON ALFA 2A [Suspect]
     Active Substance: PEGINTERFERON ALFA-2A
     Indication: HEPATITIS B
     Route: 058

REACTIONS (3)
  - Alanine aminotransferase increased [Unknown]
  - Neutrophil count decreased [Unknown]
  - White blood cell count decreased [Unknown]
